FAERS Safety Report 13997222 (Version 1)
Quarter: 2017Q3

REPORT INFORMATION
  Report Type: Spontaneous
  Country: PL (occurrence: PL)
  Receive Date: 20170921
  Receipt Date: 20170921
  Transmission Date: 20171128
  Serious: Yes (Hospitalization)
  Sender: FDA-Public Use
  Company Number: PHHY2017PL133293

PATIENT
  Age: 61 Year
  Sex: Male

DRUGS (4)
  1. SPRYCEL [Suspect]
     Active Substance: DASATINIB
     Dosage: 80 MG, QD
     Route: 065
  2. IMATINIB [Suspect]
     Active Substance: IMATINIB
     Indication: CHRONIC MYELOID LEUKAEMIA
     Dosage: 400 MG, QD
     Route: 065
     Dates: start: 20120215
  3. NILOTINIB [Suspect]
     Active Substance: NILOTINIB
     Indication: CHRONIC MYELOID LEUKAEMIA
     Dosage: UNK
     Route: 065
  4. SPRYCEL [Suspect]
     Active Substance: DASATINIB
     Indication: CHRONIC MYELOID LEUKAEMIA
     Dosage: 100 MG, QD
     Route: 065
     Dates: start: 20131204

REACTIONS (9)
  - Pleural effusion [Recovered/Resolved]
  - Eyelid oedema [Recovered/Resolved]
  - Exercise tolerance decreased [Recovered/Resolved]
  - Lacrimation increased [Recovered/Resolved]
  - Drug intolerance [Recovered/Resolved]
  - Bone pain [Recovered/Resolved]
  - Swelling face [Recovered/Resolved]
  - Joint swelling [Recovered/Resolved]
  - Dyspnoea [Recovered/Resolved]

NARRATIVE: CASE EVENT DATE: 20130315
